FAERS Safety Report 6890156 (Version 2)
Quarter: 2015Q1

REPORT INFORMATION
  Report Type: Spontaneous
  Country: FR (occurrence: FR)
  Receive Date: 20090123
  Receipt Date: 20150311
  Transmission Date: 20150721
  Serious: Yes (Death)
  Sender: FDA-Public Use
  Company Number: PHBS2009FR00576

PATIENT
  Age: 21 Year
  Sex: Female

DRUGS (4)
  1. IMATINIB [Suspect]
     Active Substance: IMATINIB
     Indication: CHRONIC MYELOID LEUKAEMIA
     Dosage: 400 MG/DAY
     Route: 065
     Dates: start: 200410
  2. IMATINIB [Suspect]
     Active Substance: IMATINIB
     Dosage: 600 MG/DAY
     Route: 065
  3. DASATINIB [Suspect]
     Active Substance: DASATINIB
     Indication: CHRONIC MYELOID LEUKAEMIA
     Route: 065
  4. NILOTINIB [Suspect]
     Active Substance: NILOTINIB
     Indication: CHRONIC MYELOID LEUKAEMIA
     Route: 065

REACTIONS (3)
  - Blast crisis in myelogenous leukaemia [Fatal]
  - Gene mutation identification test positive [Unknown]
  - Drug ineffective [Fatal]

NARRATIVE: CASE EVENT DATE: 200603
